FAERS Safety Report 8941191 (Version 3)
Quarter: 2013Q1

REPORT INFORMATION
  Report Type: Spontaneous
  Country: FR (occurrence: FR)
  Receive Date: 20121203
  Receipt Date: 20130205
  Transmission Date: 20140127
  Serious: Yes (Hospitalization)
  Sender: FDA-Public Use
  Company Number: FR-BRISTOL-MYERS SQUIBB COMPANY-17152729

PATIENT
  Age: 88 Year
  Sex: Male

DRUGS (13)
  1. COUMADIN TABS [Suspect]
     Dosage: 1DF= 0.5-UNITS NOS
     Route: 048
     Dates: start: 20121001
  2. PREVISCAN [Suspect]
     Indication: ATRIAL FIBRILLATION
     Dosage: 0.5-UNITS NOS
     Route: 048
     Dates: start: 201208, end: 20120926
  3. CARDENSIEL [Suspect]
     Indication: CARDIAC FAILURE
     Route: 048
     Dates: start: 20120926
  4. IMOVANE [Suspect]
     Indication: SLEEP DISORDER
     Route: 048
     Dates: start: 20120926
  5. UVEDOSE [Suspect]
     Indication: VITAMIN D DEFICIENCY
     Dosage: 1DF= 1 VIAL
     Route: 048
     Dates: start: 20120927
  6. LYRICA [Suspect]
     Route: 048
     Dates: start: 20121006
  7. DIFFU-K [Concomitant]
  8. LASILIX [Concomitant]
  9. TAHOR [Concomitant]
  10. STILNOX [Concomitant]
  11. KARDEGIC [Concomitant]
  12. AERIUS [Concomitant]
  13. PARACETAMOL [Concomitant]

REACTIONS (1)
  - Dermatitis exfoliative [Recovered/Resolved]
